FAERS Safety Report 5118076-5 (Version None)
Quarter: 2006Q4

REPORT INFORMATION
  Report Type: 
  Country: None (occurrence: None)
  Receive Date: 20061001
  Receipt Date: 20060919
  Transmission Date: 20070319
  Serious: Yes (Hospitalization)
  Sender: FDA-Public Use
  Company Number: FR-ABBOTT-06P-056-0344304-00

PATIENT
  Age: 10 Year
  Sex: Female

DRUGS (4)
  1. MICROPAKINE GRANULES [Suspect]
     Indication: GENERALISED NON-CONVULSIVE EPILEPSY
     Dosage: 33%
     Route: 048
     Dates: start: 20040202, end: 20060219
  2. CLOBAZAM [Suspect]
     Indication: GENERALISED NON-CONVULSIVE EPILEPSY
     Route: 048
     Dates: start: 20040414
  3. AMOXICILLIN TRIHYDRATE [Suspect]
     Indication: INFLAMMATION
     Route: 048
     Dates: start: 20060213
  4. HEXETIDINE [Suspect]
     Indication: INFLAMMATION
     Route: 002
     Dates: start: 20060213

REACTIONS (4)
  - ASTHENIA [None]
  - DIET REFUSAL [None]
  - PANCYTOPENIA [None]
  - TONSILLITIS [None]
